FAERS Safety Report 8868566 (Version 2)
Quarter: 2012Q4

REPORT INFORMATION
  Report Type: 
  Country: ZA (occurrence: ZA)
  Receive Date: 20121024
  Receipt Date: 20121029
  Transmission Date: 20130627
  Serious: Yes (Other)
  Sender: FDA-Public Use
  Company Number: ZA-GLAXOSMITHKLINE-A0998555A

PATIENT
  Sex: Male
  Weight: 64 kg

DRUGS (1)
  1. NICORETTE [Suspect]
     Indication: SMOKING CESSATION THERAPY
     Dosage: 2MG Unknown
     Route: 002
     Dates: start: 201012

REACTIONS (3)
  - Blindness transient [Recovered/Resolved]
  - Feeling abnormal [Unknown]
  - Dry mouth [Unknown]
